FAERS Safety Report 20091749 (Version 1)
Quarter: 2021Q4

REPORT INFORMATION
  Report Type: Spontaneous
  Country: PE (occurrence: PE)
  Receive Date: 20211119
  Receipt Date: 20211119
  Transmission Date: 20220303
  Serious: Yes (Other)
  Sender: FDA-Public Use
  Company Number: PE-BAYER-2020-030420

PATIENT

DRUGS (1)
  1. ILOPROST [Suspect]
     Active Substance: ILOPROST
     Indication: Pulmonary arterial hypertension
     Dosage: UNK

REACTIONS (7)
  - Bradycardia [Unknown]
  - Rash [Unknown]
  - Tachycardia [Unknown]
  - Headache [Unknown]
  - Nausea [Unknown]
  - Hypotension [Unknown]
  - Dizziness [Unknown]
